FAERS Safety Report 17500718 (Version 1)
Quarter: 2020Q1

REPORT INFORMATION
  Report Type: Spontaneous
  Country: US (occurrence: US)
  Receive Date: 20200305
  Receipt Date: 20200305
  Transmission Date: 20200409
  Serious: Yes (Life-Threatening, Hospitalization, Other)
  Sender: FDA-Public Use
  Company Number: US-DRREDDYS-USA/USA/20/0120354

PATIENT
  Age: 23 Year
  Sex: Female

DRUGS (5)
  1. LIDOCAINE. [Concomitant]
     Active Substance: LIDOCAINE
     Indication: ARRHYTHMIA
     Route: 041
  2. LOPERAMIDE 2 MG [Concomitant]
     Active Substance: LOPERAMIDE
     Dosage: AFTER EXTUBATION, SHE ADMITTED TO TAKING UP TO 80 TABLETS OF LOPERAMIDE 2 MG (160 MG TOTAL) AT A TIM
     Route: 048
  3. MAGNESIUM [Concomitant]
     Active Substance: MAGNESIUM
     Indication: TORSADE DE POINTES
     Route: 041
  4. HEPARIN SODIUM. [Suspect]
     Active Substance: HEPARIN SODIUM
     Indication: PRODUCT USED FOR UNKNOWN INDICATION
     Route: 065
  5. LOPERAMIDE 2 MG [Concomitant]
     Active Substance: LOPERAMIDE
     Indication: SUBSTANCE USE
     Dosage: AFTER EXTUBATION, SHE ADMITTED TO TAKING UP TO 80 TABLETS OF LOPERAMIDE 2 MG (160 MG TOTAL) AT A TIM
     Route: 048

REACTIONS (8)
  - Pulmonary embolism [Recovering/Resolving]
  - Hepatic haemorrhage [Recovering/Resolving]
  - Pelvic venous thrombosis [Recovering/Resolving]
  - Peripheral artery thrombosis [Recovering/Resolving]
  - Heparin-induced thrombocytopenia [Recovered/Resolved]
  - Hypotension [Recovering/Resolving]
  - Spontaneous haemorrhage [Recovered/Resolved]
  - Haemoglobin decreased [Recovered/Resolved]
